FAERS Safety Report 20520182 (Version 4)
Quarter: 2022Q2

REPORT INFORMATION
  Report Type: Spontaneous
  Country: NL (occurrence: NL)
  Receive Date: 20220225
  Receipt Date: 20220517
  Transmission Date: 20220721
  Serious: Yes (Disabling)
  Sender: FDA-Public Use
  Company Number: None

PATIENT
  Sex: Female
  Weight: 64 kg

DRUGS (1)
  1. ETONOGESTREL [Suspect]
     Active Substance: ETONOGESTREL
     Indication: Menstrual cycle management
     Dosage: 1 DOSAGE FORM ,1X3 YEAR
     Dates: start: 202001, end: 20201223

REACTIONS (6)
  - Complication of device insertion [Recovering/Resolving]
  - Muscle discomfort [Recovering/Resolving]
  - Neuralgia [Recovering/Resolving]
  - Complication of device removal [Recovering/Resolving]
  - Scar [Recovering/Resolving]
  - Device placement issue [Recovering/Resolving]
